FAERS Safety Report 8057383-3 (Version None)
Quarter: 2012Q1

REPORT INFORMATION
  Report Type: 
  Country: None (occurrence: None)
  Receive Date: 20120119
  Receipt Date: 20120111
  Transmission Date: 20120608
  Serious: Yes (Hospitalization)
  Sender: FDA-Public Use
  Company Number: US-MPIJNJ-2011-06463

PATIENT
  Sex: Male
  Weight: 65.306 kg

DRUGS (1)
  1. VELCADE [Suspect]
     Indication: MULTIPLE MYELOMA
     Dosage: 1.3 MG/M2, UNK
     Route: 042
     Dates: start: 20110801, end: 20110929

REACTIONS (5)
  - WEIGHT DECREASED [None]
  - DIARRHOEA [None]
  - AGEUSIA [None]
  - DECREASED APPETITE [None]
  - MOBILITY DECREASED [None]
